FAERS Safety Report 13543029 (Version 1)
Quarter: 2017Q2

REPORT INFORMATION
  Report Type: Spontaneous
  Country: US (occurrence: US)
  Receive Date: 20170513
  Receipt Date: 20170513
  Transmission Date: 20170830
  Serious: Yes (Other)
  Sender: FDA-Public Use
  Company Number: US-ACCORD-051363

PATIENT
  Age: 23 Year
  Sex: Female

DRUGS (2)
  1. VALPROIC ACID. [Concomitant]
     Active Substance: VALPROIC ACID
     Route: 048
  2. TOPIRAMATE. [Suspect]
     Active Substance: TOPIRAMATE
     Indication: PRODUCT USED FOR UNKNOWN INDICATION
     Dosage: UNKNOWN QUANTITY OF MEDICATION
     Route: 048

REACTIONS (4)
  - Circulatory collapse [Unknown]
  - Acidosis hyperchloraemic [Unknown]
  - Toxicity to various agents [Unknown]
  - Metabolic acidosis [Unknown]
